FAERS Safety Report 15767729 (Version 1)
Quarter: 2018Q4

REPORT INFORMATION
  Report Type: Spontaneous
  Country: JP (occurrence: JP)
  Receive Date: 20181227
  Receipt Date: 20181227
  Transmission Date: 20190205
  Serious: Yes (Hospitalization, Other)
  Sender: FDA-Public Use
  Company Number: JP-009507513-1812JPN000113J

PATIENT
  Age: 77 Year
  Sex: Female

DRUGS (1)
  1. KEYTRUDA [Suspect]
     Active Substance: PEMBROLIZUMAB
     Indication: SQUAMOUS CELL CARCINOMA OF LUNG
     Dosage: 200 MILLIGRAM, Q3W
     Route: 041
     Dates: start: 20180221, end: 201810

REACTIONS (2)
  - Glycosylated haemoglobin increased [Recovering/Resolving]
  - Fulminant type 1 diabetes mellitus [Recovering/Resolving]

NARRATIVE: CASE EVENT DATE: 201811
